FAERS Safety Report 6306689-4 (Version None)
Quarter: 2009Q3

REPORT INFORMATION
  Report Type: 
  Country: None (occurrence: None)
  Receive Date: 20090812
  Receipt Date: 20090803
  Transmission Date: 20100115
  Serious: Yes (Death, Hospitalization)
  Sender: FDA-Public Use
  Company Number: TW-BAXTER-2009BH011325

PATIENT
  Age: 59 Year
  Sex: Female

DRUGS (3)
  1. DIANEAL [Suspect]
     Indication: PERITONEAL DIALYSIS
     Route: 033
     Dates: start: 20090601
  2. DIANEAL [Suspect]
     Route: 033
     Dates: start: 20090601
  3. DIANEAL [Suspect]
     Route: 033
     Dates: start: 20090301, end: 20090601

REACTIONS (2)
  - PULMONARY OEDEMA [None]
  - SEPSIS [None]
